FAERS Safety Report 5446794-8 (Version None)
Quarter: 2007Q3

REPORT INFORMATION
  Report Type: 
  Country: None (occurrence: None)
  Receive Date: 20070907
  Receipt Date: 20070827
  Transmission Date: 20080115
  Serious: Yes (Other)
  Sender: FDA-Public Use
  Company Number: US-PFIZER INC-2007072344

PATIENT
  Sex: Female
  Weight: 68 kg

DRUGS (8)
  1. CHANTIX [Suspect]
     Indication: SMOKING CESSATION THERAPY
  2. ATENOLOL [Concomitant]
  3. ALL OTHER THERAPEUTIC PRODUCTS [Concomitant]
  4. LEXAPRO [Concomitant]
     Dosage: TEXT:AT BEDTIME
  5. PRILOSEC [Concomitant]
  6. ASPIRIN [Concomitant]
  7. NIACIN [Concomitant]
  8. LIPITOR [Concomitant]
     Indication: BLOOD CHOLESTEROL

REACTIONS (4)
  - BLOOD GLUCOSE INCREASED [None]
  - OESOPHAGEAL PAIN [None]
  - POLYURIA [None]
  - VULVOVAGINAL BURNING SENSATION [None]
